FAERS Safety Report 18259592 (Version 1)
Quarter: 2020Q3

REPORT INFORMATION
  Report Type: Report from Study
  Country: None (occurrence: BR)
  Receive Date: 20200911
  Receipt Date: 20200911
  Transmission Date: 20201103
  Serious: Yes (Other)
  Sender: FDA-Public Use
  Company Number: BR-ABBVIE-20K-020-3562219-00

PATIENT
  Sex: Female
  Weight: 51 kg

DRUGS (4)
  1. PULSATILLA [Concomitant]
     Active Substance: PULSATILLA VULGARIS
     Indication: FATIGUE
     Dosage: 5 DROPS, THREE TIMES A DAY
  2. HUMIRA [Suspect]
     Active Substance: ADALIMUMAB
     Dosage: LOADING DOSE ? WEEK 00
     Route: 058
     Dates: start: 20200819, end: 20200819
  3. HUMIRA [Suspect]
     Active Substance: ADALIMUMAB
     Dosage: LOADING DOSE ? WEEK 02
     Route: 058
     Dates: start: 20200902, end: 20200902
  4. HUMIRA [Suspect]
     Active Substance: ADALIMUMAB
     Indication: FOETAL EXPOSURE DURING PREGNANCY
     Route: 058
     Dates: end: 20190415

REACTIONS (2)
  - Abortion spontaneous [Unknown]
  - Maternal exposure during pregnancy [Unknown]
